FAERS Safety Report 4353818-8 (Version None)
Quarter: 2004Q2

REPORT INFORMATION
  Report Type: 
  Country: None (occurrence: None)
  Receive Date: 20040430
  Receipt Date: 20040422
  Transmission Date: 20050107
  Serious: Yes (Hospitalization)
  Sender: FDA-Public Use
  Company Number: 2004027732

PATIENT
  Age: 90 Year
  Sex: Male

DRUGS (8)
  1. AMLODIPINE [Suspect]
     Indication: ILL-DEFINED DISORDER
     Dosage: 5 MG (DAILY), ORAL
     Route: 048
  2. ACEBUTOLOL [Suspect]
     Indication: ILL-DEFINED DISORDER
     Dosage: 100 MG (DAILY), ORAL
     Route: 048
  3. GINKOR PROCTO (GINKGO BILOBA) [Concomitant]
  4. TRIMETAZIDINE HYDROCHLORIDE (TRIMETAZIDINE HYDROCHLORIDE) [Concomitant]
  5. MEBEVERINE HYDROCHLORIDE (MEBEVERINE HYDROCHLORIDE) [Concomitant]
  6. NITROGLYCERIN [Concomitant]
  7. FLUINDIONE (FLUINDIONE) [Concomitant]
  8. ALLOPURINOL [Concomitant]

REACTIONS (7)
  - DEHYDRATION [None]
  - DIZZINESS POSTURAL [None]
  - DRUG INTERACTION [None]
  - ORTHOSTATIC HYPOTENSION [None]
  - RENAL FAILURE [None]
  - RIB FRACTURE [None]
  - SYNCOPE [None]
